FAERS Safety Report 8833188 (Version 2)
Quarter: 2013Q4

REPORT INFORMATION
  Report Type: Spontaneous
  Country: US (occurrence: US)
  Receive Date: 20121010
  Receipt Date: 20131111
  Transmission Date: 20140711
  Serious: Yes (Death, Hospitalization, Other)
  Sender: FDA-Public Use
  Company Number: US-JNJFOC-20121004223

PATIENT
  Age: 55 Year
  Sex: Male

DRUGS (11)
  1. STELARA [Suspect]
     Indication: PSORIASIS
     Route: 058
     Dates: start: 20110425
  2. STELARA [Suspect]
     Indication: PSORIASIS
     Route: 058
     Dates: start: 20110427
  3. STELARA [Suspect]
     Indication: PSORIASIS
     Route: 058
     Dates: start: 20110607
  4. STELARA [Suspect]
     Indication: PSORIASIS
     Route: 058
     Dates: start: 20120412
  5. STELARA [Suspect]
     Indication: PSORIASIS
     Route: 058
     Dates: start: 20120815
  6. STELARA [Suspect]
     Indication: PSORIASIS
     Route: 058
     Dates: start: 20110913
  7. LEVOTHYROXINE [Concomitant]
     Indication: HYPOTHYROIDISM
     Dosage: 175 MCG
     Route: 065
     Dates: start: 2004
  8. LOVASTATIN [Concomitant]
     Indication: BLOOD CHOLESTEROL INCREASED
     Route: 065
  9. OMEPRAZOLE [Concomitant]
     Indication: GASTROOESOPHAGEAL REFLUX DISEASE
     Route: 065
  10. PROBENECID [Concomitant]
     Indication: PRODUCT USED FOR UNKNOWN INDICATION
     Route: 065
  11. PROTOPIC [Concomitant]
     Indication: PSORIASIS
     Route: 065
     Dates: start: 2010

REACTIONS (16)
  - Staphylococcal infection [Recovered/Resolved]
  - Sepsis [Fatal]
  - Bladder disorder [Unknown]
  - Nephrolithiasis [Unknown]
  - Splenomegaly [Unknown]
  - Empyema [Unknown]
  - Urethral stenosis [Recovered/Resolved]
  - Pleural effusion [Unknown]
  - Pyelonephritis [Unknown]
  - Streptococcal urinary tract infection [Unknown]
  - Diverticulum [Unknown]
  - Fungal infection [Unknown]
  - Blood creatinine increased [Unknown]
  - Headache [Unknown]
  - Confusional state [Unknown]
  - Somnolence [Unknown]
